FAERS Safety Report 23976375 (Version 1)
Quarter: 2024Q2

REPORT INFORMATION
  Report Type: Spontaneous
  Country: US (occurrence: US)
  Receive Date: 20240614
  Receipt Date: 20240614
  Transmission Date: 20240716
  Serious: No
  Sender: FDA-Public Use
  Company Number: US-JNJFOC-20240580380

PATIENT
  Sex: Male

DRUGS (1)
  1. MENS ROGAINE EXTRA STRENGTH [Suspect]
     Active Substance: MINOXIDIL
     Indication: Alopecia
     Dosage: PRODUCT DOSE OR QUANTITY: DROPPER AND USED THE HALF OF THE REQUIRED DROPPER AMOUNT
     Route: 061
     Dates: start: 201808, end: 20240312

REACTIONS (2)
  - Alopecia [Not Recovered/Not Resolved]
  - Product use in unapproved indication [Unknown]

NARRATIVE: CASE EVENT DATE: 20180801
